FAERS Safety Report 18894893 (Version 3)
Quarter: 2023Q1

REPORT INFORMATION
  Report Type: Spontaneous
  Country: US (occurrence: US)
  Receive Date: 20210215
  Receipt Date: 20230131
  Transmission Date: 20230418
  Serious: No
  Sender: FDA-Public Use
  Company Number: US-PFIZER INC-2021065735

PATIENT
  Age: 75 Year
  Sex: Male
  Weight: 105.23 kg

DRUGS (3)
  1. VYNDAMAX [Suspect]
     Active Substance: TAFAMIDIS
     Indication: Cardiac amyloidosis
     Dosage: 61 MG, 1X/DAY
     Route: 048
     Dates: start: 2020
  2. VYNDAMAX [Suspect]
     Active Substance: TAFAMIDIS
     Dosage: 61 MG, ALTERNATE DAY (EVERY OTHER DAY)
     Route: 048
     Dates: start: 202101
  3. VYNDAMAX [Suspect]
     Active Substance: TAFAMIDIS
     Dosage: 61 MG (TAKING THEM EVERY 3 DAYS)

REACTIONS (2)
  - Intentional product misuse [Unknown]
  - Body height decreased [Unknown]

NARRATIVE: CASE EVENT DATE: 20210101
